FAERS Safety Report 7426310-1 (Version None)
Quarter: 2011Q2

REPORT INFORMATION
  Report Type: 
  Country: None (occurrence: None)
  Receive Date: 20110420
  Receipt Date: 20110412
  Transmission Date: 20111010
  Serious: Yes (Life-Threatening, Hospitalization)
  Sender: FDA-Public Use
  Company Number: B0639918A

PATIENT
  Sex: Female

DRUGS (2)
  1. DEPAKENE [Suspect]
     Indication: EPILEPSY
     Dosage: 750MG TWICE PER DAY
     Route: 048
     Dates: start: 20080501, end: 20100214
  2. LAMICTAL [Suspect]
     Indication: EPILEPSY
     Route: 048
     Dates: start: 20100119, end: 20100213

REACTIONS (38)
  - TOXIC EPIDERMAL NECROLYSIS [None]
  - LIP DISORDER [None]
  - DYSPHAGIA [None]
  - VISUAL ACUITY REDUCED [None]
  - CORNEAL OPACITY [None]
  - ITCHING SCAR [None]
  - RASH PAPULAR [None]
  - DERMAL CYST [None]
  - INCORRECT DOSE ADMINISTERED [None]
  - SKIN DISORDER [None]
  - ULCERATIVE KERATITIS [None]
  - SYMBLEPHARON [None]
  - WEIGHT DECREASED [None]
  - BLINDNESS [None]
  - EYELID OEDEMA [None]
  - PIGMENTATION DISORDER [None]
  - BLISTER [None]
  - FATIGUE [None]
  - STOMATITIS [None]
  - MUCOSAL EROSION [None]
  - KERATITIS [None]
  - CORNEAL OEDEMA [None]
  - ALOPECIA [None]
  - HERNIA [None]
  - ORAL MUCOSAL EXFOLIATION [None]
  - MOUTH ULCERATION [None]
  - MOUTH HAEMORRHAGE [None]
  - CORNEAL PERFORATION [None]
  - IRIS INCARCERATION [None]
  - EYE DISCHARGE [None]
  - PRODUCTIVE COUGH [None]
  - PYREXIA [None]
  - PHOTOPHOBIA [None]
  - CONJUNCTIVITIS [None]
  - EYE PAIN [None]
  - EYE EXCISION [None]
  - PIGMENTATION LIP [None]
  - SKIN DISCOLOURATION [None]
